FAERS Safety Report 6171660-2 (Version None)
Quarter: 2009Q2

REPORT INFORMATION
  Report Type: 
  Country: None (occurrence: None)
  Receive Date: 20090429
  Receipt Date: 20090423
  Transmission Date: 20091009
  Serious: Yes (Hospitalization)
  Sender: FDA-Public Use
  Company Number: BR-AVENTIS-200913630GDDC

PATIENT
  Age: 71 Year
  Sex: Male

DRUGS (2)
  1. LANTUS [Suspect]
     Route: 058
     Dates: start: 20090301, end: 20090301
  2. LANTUS [Suspect]
     Route: 058
     Dates: start: 20090301, end: 20090101

REACTIONS (4)
  - BLOOD GLUCOSE FLUCTUATION [None]
  - CARDIAC DISORDER [None]
  - DIABETES MELLITUS [None]
  - RENAL FAILURE [None]
